FAERS Safety Report 15885747 (Version 1)
Quarter: 2019Q1

REPORT INFORMATION
  Report Type: Report from Study
  Country: US (occurrence: US)
  Receive Date: 20190129
  Receipt Date: 20190129
  Transmission Date: 20190417
  Serious: Yes (Death, Hospitalization)
  Sender: FDA-Public Use
  Company Number: US-TAIHO ONCOLOGY  INC-EU-2018-02303

PATIENT
  Age: 74 Year
  Sex: Female

DRUGS (7)
  1. POT CHLORIDE [Concomitant]
     Active Substance: POTASSIUM CHLORIDE
     Dosage: NI
  2. LONSURF [Suspect]
     Active Substance: TIPIRACIL HYDROCHLORIDE\TRIFLURIDINE
     Indication: METASTASES TO LIVER
     Dosage: LONSURF FIRST INTERRUPTED AND THEN DISCONTINUED ON AN UNSPECIFIED DAY
     Route: 048
     Dates: start: 20181120
  3. LORAZEPAM. [Concomitant]
     Active Substance: LORAZEPAM
     Dosage: NI
  4. PREDNISONE. [Concomitant]
     Active Substance: PREDNISONE
     Dosage: NI
  5. PANTOPRAZOLE [Concomitant]
     Active Substance: PANTOPRAZOLE
     Dosage: NI
  6. METHYLPHENID [Concomitant]
     Active Substance: METHYLPHENIDATE
     Dosage: NI
  7. SERTRALINE [Concomitant]
     Active Substance: SERTRALINE HYDROCHLORIDE
     Dosage: NI

REACTIONS (4)
  - Product use in unapproved indication [Unknown]
  - Vomiting [Unknown]
  - Abdominal pain [Unknown]
  - Death [Fatal]

NARRATIVE: CASE EVENT DATE: 2018
